FAERS Safety Report 15465529 (Version 1)
Quarter: 2018Q4

REPORT INFORMATION
  Report Type: Spontaneous
  Country: RO (occurrence: RO)
  Receive Date: 20181004
  Receipt Date: 20181004
  Transmission Date: 20190204
  Serious: Yes (Other)
  Sender: FDA-Public Use
  Company Number: RO-PFIZER INC-2018399331

PATIENT
  Age: 54 Year
  Sex: Male
  Weight: 86 kg

DRUGS (1)
  1. AXITINIB [Suspect]
     Active Substance: AXITINIB
     Indication: RENAL CANCER METASTATIC
     Dosage: 5 MG, 2X/DAY

REACTIONS (5)
  - Vomiting [Unknown]
  - Gastrointestinal disorder [Unknown]
  - Nausea [Unknown]
  - Fatigue [Unknown]
  - Hepatocellular injury [Unknown]

NARRATIVE: CASE EVENT DATE: 201809
